FAERS Safety Report 22171546 (Version 8)
Quarter: 2024Q4

REPORT INFORMATION
  Report Type: Spontaneous
  Country: US (occurrence: US)
  Receive Date: 20230404
  Receipt Date: 20241113
  Transmission Date: 20250115
  Serious: No
  Sender: PFIZER
  Company Number: US-PFIZER INC-PV202300061037

PATIENT
  Age: 88 Year
  Sex: Female
  Weight: 62.585 kg

DRUGS (7)
  1. IBRANCE [Suspect]
     Active Substance: PALBOCICLIB
     Indication: Neoplasm malignant
     Dosage: 100 MG, 1X/DAY (FOR 21 DAYS)
     Route: 048
     Dates: start: 202301
  2. IBRANCE [Suspect]
     Active Substance: PALBOCICLIB
     Dosage: 75 MG, CYCLIC (1 TAB BY MOUTH DAILY FOR 21 DAYS AND 7 DAYS OFF)
     Route: 048
     Dates: start: 20240802, end: 2024
  3. FEMARA [Concomitant]
     Active Substance: LETROZOLE
     Dosage: 2.5 MG, 1X/DAY
     Dates: start: 202212
  4. CRESTOR [Concomitant]
     Active Substance: ROSUVASTATIN CALCIUM
     Dosage: 5 MG, 1X/DAY (MONDAY, WEDNESDAY, FRIDAY)
     Dates: start: 202201
  5. ALDACTONE [Concomitant]
     Active Substance: SPIRONOLACTONE
     Dosage: 12.5 MG, 1X/DAY
     Dates: start: 202201
  6. ENTRESTO [Concomitant]
     Active Substance: SACUBITRIL\VALSARTAN
     Dosage: 1 DF, 2X/DAY
     Dates: start: 202201
  7. CARVEDILOL [Concomitant]
     Active Substance: CARVEDILOL
     Dosage: 3.125 MG, 2X/DAY
     Dates: start: 202201

REACTIONS (4)
  - Hypokinesia [Unknown]
  - Dysphonia [Unknown]
  - Full blood count decreased [Unknown]
  - Constipation [Recovered/Resolved]
